FAERS Safety Report 18152697 (Version 1)
Quarter: 2020Q3

REPORT INFORMATION
  Report Type: Spontaneous
  Country: NL (occurrence: NL)
  Receive Date: 20200814
  Receipt Date: 20200814
  Transmission Date: 20201103
  Serious: Yes (Other)
  Sender: FDA-Public Use
  Company Number: NL-ENDO PHARMACEUTICALS INC-2020-005523

PATIENT
  Sex: Female

DRUGS (2)
  1. AVEED [Suspect]
     Active Substance: TESTOSTERONE UNDECANOATE
     Indication: TRANSGENDER HORMONAL THERAPY
     Dosage: 1000 MG, EVERY 10 TO 14 WKS
     Route: 030
  2. TESTIM [Suspect]
     Active Substance: TESTOSTERONE
     Indication: TRANSGENDER HORMONAL THERAPY
     Dosage: 20 TO 100 MG, DAILY
     Route: 065

REACTIONS (2)
  - Off label use [Unknown]
  - Invasive ductal breast carcinoma [Unknown]
